FAERS Safety Report 15189638 (Version 1)
Quarter: 2018Q3

REPORT INFORMATION
  Report Type: Spontaneous
  Country: US (occurrence: US)
  Receive Date: 20180724
  Receipt Date: 20180724
  Transmission Date: 20181010
  Serious: Yes (Other)
  Sender: FDA-Public Use
  Company Number: US-SA-2018SA192120

PATIENT
  Age: 55 Year
  Sex: Female

DRUGS (3)
  1. NEOSAR [Concomitant]
     Active Substance: CYCLOPHOSPHAMIDE
  2. TAXOTERE [Suspect]
     Active Substance: DOCETAXEL
     Dosage: FREQUENCY EVERY THREE WEEKS
     Dates: start: 20110602, end: 20110602
  3. TAXOTERE [Suspect]
     Active Substance: DOCETAXEL
     Dosage: FREQUENCY EVERY THREE WEEKS
     Dates: start: 20110929, end: 20110929

REACTIONS (1)
  - Alopecia [Recovering/Resolving]

NARRATIVE: CASE EVENT DATE: 20120329
